FAERS Safety Report 5019070-5 (Version None)
Quarter: 2006Q2

REPORT INFORMATION
  Report Type: 
  Country: None (occurrence: None)
  Receive Date: 20060606
  Receipt Date: 20060530
  Transmission Date: 20061013
  Serious: Yes (Hospitalization)
  Sender: FDA-Public Use
  Company Number: US-BRISTOL-MYERS SQUIBB COMPANY-13395033

PATIENT
  Age: 70 Year
  Sex: Female
  Weight: 47 kg

DRUGS (3)
  1. ERBITUX [Suspect]
     Indication: NEOPLASM MALIGNANT
     Dates: start: 20060516, end: 20060516
  2. CISPLATIN [Suspect]
     Indication: NEOPLASM MALIGNANT
     Dosage: GIVEN DAYS 1 AND 22.
     Dates: start: 20060516, end: 20060516
  3. RADIATION THERAPY [Suspect]
     Indication: NEOPLASM MALIGNANT
     Dates: start: 20060516, end: 20060516

REACTIONS (4)
  - BLOOD SODIUM DECREASED [None]
  - FATIGUE [None]
  - INAPPROPRIATE ANTIDIURETIC HORMONE SECRETION [None]
  - MUCOSAL INFLAMMATION [None]
